FAERS Safety Report 4363835-X (Version None)
Quarter: 2004Q2

REPORT INFORMATION
  Report Type: 
  Country: None (occurrence: None)
  Receive Date: 20040521
  Receipt Date: 20040422
  Transmission Date: 20050107
  Serious: Yes (Hospitalization)
  Sender: FDA-Public Use
  Company Number: 2004-01683

PATIENT
  Sex: Female

DRUGS (1)
  1. IMMUCYST (BCG- IT (CONNAUGHT) ) , AVENTIS PASTEUR LTD., LOT NOT REP, M [Suspect]
     Indication: BLADDER CANCER
     Dosage: I.VES., BLADDER
     Dates: start: 20040301

REACTIONS (4)
  - ASTHENIA [None]
  - BLOOD CREATININE INCREASED [None]
  - BRONCHITIS [None]
  - PAIN [None]
